FAERS Safety Report 6414459-1 (Version None)
Quarter: 2009Q4

REPORT INFORMATION
  Report Type: 
  Country: None (occurrence: None)
  Receive Date: 20091026
  Receipt Date: 20091020
  Transmission Date: 20100525
  Serious: Yes (Hospitalization, Other)
  Sender: FDA-Public Use
  Company Number: PHEH2009US04341

PATIENT
  Sex: Female

DRUGS (18)
  1. ENABLEX [Suspect]
     Indication: HYPERTONIC BLADDER
     Dosage: 15 MG, UNK
  2. ENABLEX [Suspect]
     Dosage: 7.5 MG, BID
  3. ENABLEX [Suspect]
     Dosage: UNK
     Dates: start: 20081001, end: 20090101
  4. DIOVAN [Concomitant]
     Indication: BLOOD PRESSURE MANAGEMENT
     Dosage: 80 MG AMS + 40 MG PMS
  5. ASPIRIN [Concomitant]
     Dosage: UNK
  6. PRILOSEC [Concomitant]
  7. TRAMADOL HCL [Concomitant]
     Route: 048
  8. PROZAC [Concomitant]
  9. PRAVACHOL [Concomitant]
     Route: 048
  10. DYAZIDE [Concomitant]
     Route: 048
  11. LIDODERM [Concomitant]
  12. ZETIA [Concomitant]
     Route: 048
  13. PREMARIN [Concomitant]
  14. CALCIUM [Concomitant]
  15. AMBIEN [Concomitant]
  16. TRAZODONE [Concomitant]
  17. ACTIVELLA [Concomitant]
  18. ESTAZOLAM [Concomitant]

REACTIONS (37)
  - ABDOMINAL PAIN [None]
  - ASTHENIA [None]
  - ATROPHIC VULVOVAGINITIS [None]
  - BACTERIAL TEST [None]
  - BACTERIAL TEST POSITIVE [None]
  - BLADDER IRRITATION [None]
  - BLOOD URINE PRESENT [None]
  - CHILLS [None]
  - DECREASED APPETITE [None]
  - DRUG ADMINISTRATION ERROR [None]
  - DRUG EFFECT DECREASED [None]
  - FATIGUE [None]
  - FEELING ABNORMAL [None]
  - HAEMATURIA [None]
  - HELICOBACTER GASTRITIS [None]
  - HEPATIC CYST [None]
  - INFECTION [None]
  - INSOMNIA [None]
  - IRRITABLE BOWEL SYNDROME [None]
  - MALAISE [None]
  - MICTURITION URGENCY [None]
  - MUSCLE SPASMS [None]
  - NAUSEA [None]
  - NEOPLASM MALIGNANT [None]
  - NOCTURIA [None]
  - OBSTRUCTIVE UROPATHY [None]
  - PAIN [None]
  - RENAL CYST [None]
  - RESIDUAL URINE [None]
  - STRESS [None]
  - SYNCOPE [None]
  - URETHRAL ATROPHY [None]
  - URGE INCONTINENCE [None]
  - URINARY RETENTION [None]
  - URINARY TRACT INFECTION [None]
  - VERTIGO [None]
  - WEIGHT DECREASED [None]
